FAERS Safety Report 18300639 (Version 4)
Quarter: 2021Q2

REPORT INFORMATION
  Report Type: Spontaneous
  Country: JP (occurrence: JP)
  Receive Date: 20200923
  Receipt Date: 20210524
  Transmission Date: 20210717
  Serious: Yes (Other)
  Sender: FDA-Public Use
  Company Number: NVSJ2020JP009107

PATIENT
  Age: 74 Year
  Sex: Male
  Weight: 70 kg

DRUGS (7)
  1. FLUOROMETHOLONE. [Concomitant]
     Active Substance: FLUOROMETHOLONE
     Indication: ANTIINFLAMMATORY THERAPY
     Dosage: 1 DRP, BID
     Route: 047
     Dates: start: 20200717, end: 20200821
  2. CINAL [Concomitant]
     Indication: ANTIOXIDANT THERAPY
     Dosage: 3 G
     Route: 048
     Dates: start: 20200717
  3. BROMFENAC SODIUM [Concomitant]
     Active Substance: BROMFENAC SODIUM
     Indication: ANTIINFLAMMATORY THERAPY
     Dosage: 1 DRP, QID
     Route: 047
     Dates: start: 20200717
  4. BEOVU [Suspect]
     Active Substance: BROLUCIZUMAB-DBLL
     Indication: AGE-RELATED MACULAR DEGENERATION
     Dosage: 6 MG
     Route: 031
     Dates: start: 20200619, end: 20200619
  5. VEGAMOX OPHTHALMIC SOLUTION 0.5% [Suspect]
     Active Substance: MOXIFLOXACIN HYDROCHLORIDE
     Indication: INFECTION PROPHYLAXIS
     Dosage: 1 DRP, 5QD
     Route: 047
     Dates: start: 20200717
  6. BEOVU [Suspect]
     Active Substance: BROLUCIZUMAB-DBLL
     Dosage: 6 MG
     Route: 031
     Dates: start: 20200717, end: 20200717
  7. GLANATEC [Concomitant]
     Active Substance: RIPASUDIL HYDROCHLORIDE DIHYDRATE
     Indication: INTRAOCULAR PRESSURE TEST
     Dosage: 1 DRP, BID
     Route: 047
     Dates: start: 20200717

REACTIONS (3)
  - Iritis [Recovered/Resolved]
  - Anterior chamber cell [Unknown]
  - Corneal opacity [Recovered/Resolved]

NARRATIVE: CASE EVENT DATE: 20200718
